FAERS Safety Report 20601714 (Version 3)
Quarter: 2022Q3

REPORT INFORMATION
  Report Type: Spontaneous
  Country: JP (occurrence: JP)
  Receive Date: 20220316
  Receipt Date: 20220715
  Transmission Date: 20221027
  Serious: No
  Sender: FDA-Public Use
  Company Number: JP-GLAXOSMITHKLINE-JP2022JPN044436

PATIENT

DRUGS (12)
  1. SOTROVIMAB [Suspect]
     Active Substance: SOTROVIMAB
     Indication: COVID-19
     Dosage: 500 MG, SINGLE
     Dates: start: 20220204
  2. VEKLURY [Suspect]
     Active Substance: REMDESIVIR
     Indication: COVID-19
     Dosage: 200 MG FOR 1 DAY, 100 MG FOR 2 DAYS, DOSING NUMBER: 3
     Dates: start: 20220204, end: 20220206
  3. EDOXABAN TOSYLATE [Concomitant]
     Active Substance: EDOXABAN TOSYLATE
     Indication: Atrial fibrillation
     Dosage: 30 MG, QD, AFTER BREAKFAST
  4. AZILVA TABLETS [Concomitant]
     Indication: Hypertension
     Dosage: 10 MG, QD, AFTER BREAKFAST
  5. LANSOPRAZOLE-OD TABLETS [Concomitant]
     Indication: Prophylaxis
     Dosage: 15 MG, QD, AFTER BREAKFAST
  6. MAGNESIUM OXIDE [Concomitant]
     Active Substance: MAGNESIUM OXIDE
     Indication: Constipation
     Dosage: 330 MG, TID, AFTER BREAKFAST, LUNCH, AND DINNER
  7. ESZOPICLONE [Concomitant]
     Active Substance: ESZOPICLONE
     Indication: Insomnia
     Dosage: 1 MG, QD, BEFORE BEDTIME
  8. OLANZAPINE OD TABLET [Concomitant]
     Indication: Dementia
     Dosage: 2.5 MG, QD, AFTER DINNER
  9. OLANZAPINE OD TABLET [Concomitant]
     Indication: Delirium
  10. ACETAMINOPHEN [Concomitant]
     Active Substance: ACETAMINOPHEN
     Dosage: 400 MG, UP TO 3 TIMES A DAY (AT LEAST 6 HOURS APART), AT THE TIME OF FEVER (38 DEGREES C OR HIGHER)
     Dates: start: 20220203, end: 20220204
  11. ACETAMINOPHEN [Concomitant]
     Active Substance: ACETAMINOPHEN
     Dosage: 400 MG, UP TO 3 TIMES DAILY (AT LEAST 6 HOURS APART), AT THE TIME OF PAIN
     Dates: start: 20220206, end: 20220206
  12. ACETAMINOPHEN [Concomitant]
     Active Substance: ACETAMINOPHEN
     Dosage: 400 MG, UP TO 3 TIMES A DAY (AT LEAST 6 HOURS APART), AT THE TIME OF FEVER (38 DEGREES C OR HIGHER)
     Dates: start: 20220207, end: 20220207

REACTIONS (2)
  - Aspartate aminotransferase increased [Recovered/Resolved]
  - Alanine aminotransferase increased [Recovered/Resolved]

NARRATIVE: CASE EVENT DATE: 20220216
